FAERS Safety Report 6193892-X (Version None)
Quarter: 2009Q2

REPORT INFORMATION
  Report Type: 
  Country: None (occurrence: None)
  Receive Date: 20090514
  Receipt Date: 20090501
  Transmission Date: 20091009
  Serious: Yes (Death, Hospitalization)
  Sender: FDA-Public Use
  Company Number: 2009AL002914

PATIENT
  Age: 50 Year
  Sex: Female

DRUGS (18)
  1. ALPRAZOLAM [Suspect]
     Indication: ANXIETY
     Dosage: 1 DF; QD; PO
     Route: 048
     Dates: start: 20001001, end: 20081028
  2. FLUOXETINE [Suspect]
     Indication: FIBROMYALGIA
     Dosage: 20 MG; QD; PO
     Route: 048
     Dates: start: 19920101
  3. PAREGORIC LIQUID USP (ALPHARMA) (PAREGORIC LIQUID USP (ALPHARMA)) [Suspect]
     Dosage: 10 MG; BID; PO
     Route: 048
     Dates: start: 20080601, end: 20081007
  4. JANUVIA [Concomitant]
  5. BISOPROLOL [Concomitant]
  6. CAPECITABINE [Concomitant]
  7. VITAMIN B COMPLEX CAP [Concomitant]
  8. ZOLPIDEM TARTRATE [Concomitant]
  9. DOMPERIDONE [Concomitant]
  10. PANTOPRAZOLE SODIUM [Concomitant]
  11. DEXCHLORPHENIRAMINE MALEATE [Concomitant]
  12. ETORICOXIB [Concomitant]
  13. CHOLINE CHLORIDE [Concomitant]
  14. FERROUS GLUCONATE [Concomitant]
  15. MAGNESIUM CHLORIDE [Concomitant]
  16. MANGANESE GLUCONATE [Concomitant]
  17. POTASSIUM IODIDE [Concomitant]
  18. ZINC CHLORIDE [Concomitant]

REACTIONS (8)
  - BREAST CANCER [None]
  - DEHYDRATION [None]
  - DIABETES MELLITUS [None]
  - DIARRHOEA [None]
  - FIBROMYALGIA [None]
  - INSOMNIA [None]
  - MITRAL VALVE PROLAPSE [None]
  - VOMITING [None]
